FAERS Safety Report 4409111-8 (Version None)
Quarter: 2004Q3

REPORT INFORMATION
  Report Type: 
  Country: None (occurrence: None)
  Receive Date: 20040727
  Receipt Date: 20040714
  Transmission Date: 20050211
  Serious: Yes (Other)
  Sender: FDA-Public Use
  Company Number: PT-MERCK-0407PRT00005

PATIENT
  Age: 76 Year
  Sex: Male

DRUGS (4)
  1. ZETIA [Suspect]
     Indication: HYPERCHOLESTEROLAEMIA
     Route: 048
     Dates: start: 20040101
  2. FENOFIBRATE [Concomitant]
     Route: 048
     Dates: start: 20040101, end: 20040101
  3. PRAVASTATIN SODIUM [Concomitant]
     Route: 048
     Dates: start: 20040101, end: 20040101
  4. PRAVASTATIN SODIUM [Concomitant]
     Route: 048
     Dates: start: 20040101

REACTIONS (3)
  - BLOOD CREATINE PHOSPHOKINASE INCREASED [None]
  - MYALGIA [None]
  - MYOSITIS [None]
